FAERS Safety Report 6547449-9 (Version None)
Quarter: 2010Q1

REPORT INFORMATION
  Report Type: 
  Country: None (occurrence: None)
  Receive Date: 20100122
  Receipt Date: 20091210
  Transmission Date: 20100710
  Serious: Yes (Other)
  Sender: FDA-Public Use
  Company Number: JP-ROCHE-680522

PATIENT
  Sex: Male
  Weight: 53 kg

DRUGS (24)
  1. TOCILIZUMAB [Suspect]
     Indication: RHEUMATOID ARTHRITIS
     Route: 041
     Dates: start: 20080619, end: 20080619
  2. TOCILIZUMAB [Suspect]
     Route: 041
     Dates: start: 20080717, end: 20080717
  3. TOCILIZUMAB [Suspect]
     Route: 041
     Dates: start: 20080821, end: 20080821
  4. TOCILIZUMAB [Suspect]
     Route: 041
     Dates: start: 20080918, end: 20080918
  5. TOCILIZUMAB [Suspect]
     Route: 041
     Dates: start: 20081016, end: 20081016
  6. TOCILIZUMAB [Suspect]
     Route: 041
     Dates: start: 20081113, end: 20081113
  7. TOCILIZUMAB [Suspect]
     Route: 041
     Dates: start: 20081211, end: 20081211
  8. TOCILIZUMAB [Suspect]
     Route: 041
     Dates: start: 20090122, end: 20090122
  9. TOCILIZUMAB [Suspect]
     Route: 041
     Dates: start: 20090226, end: 20090226
  10. TOCILIZUMAB [Suspect]
     Route: 041
     Dates: start: 20090430, end: 20090430
  11. TOCILIZUMAB [Suspect]
     Route: 041
     Dates: start: 20090528, end: 20090528
  12. TOCILIZUMAB [Suspect]
     Route: 041
     Dates: start: 20090625, end: 20090625
  13. TOCILIZUMAB [Suspect]
     Route: 041
     Dates: start: 20090723, end: 20090723
  14. TOCILIZUMAB [Suspect]
     Route: 041
     Dates: start: 20090820, end: 20090820
  15. TOCILIZUMAB [Suspect]
     Route: 041
     Dates: start: 20090917
  16. LOXONIN [Suspect]
     Indication: DRUG USE FOR UNKNOWN INDICATION
     Dosage: DOSE FORM: ORAL FORMULATION (NOT OTHERWISE SPECIFIED)
     Route: 048
     Dates: end: 20080821
  17. VOLTAREN [Suspect]
     Indication: DRUG USE FOR UNKNOWN INDICATION
     Route: 054
  18. PROGRAF [Suspect]
     Indication: RHEUMATOID ARTHRITIS
     Dosage: DOSE FORM: ORAL FORMULATION (NOT OTHERWISE SPECIFIED)
     Route: 048
     Dates: end: 20080814
  19. METHOTREXATE [Concomitant]
     Route: 048
  20. PREDONINE [Concomitant]
     Route: 048
  21. ULGUT [Concomitant]
     Route: 048
     Dates: end: 20080821
  22. FELBINAC [Concomitant]
     Dosage: DRUG REPORTED AS SELTOUCH
     Route: 061
  23. GASTER D [Concomitant]
     Route: 048
     Dates: end: 20080821
  24. BONALON [Concomitant]
     Route: 048
     Dates: end: 20080814

REACTIONS (3)
  - HAEMATEMESIS [None]
  - NASOPHARYNGITIS [None]
  - RENAL IMPAIRMENT [None]
